FAERS Safety Report 25637747 (Version 1)
Quarter: 2025Q3

REPORT INFORMATION
  Report Type: Spontaneous
  Country: US (occurrence: US)
  Receive Date: 20250804
  Receipt Date: 20250804
  Transmission Date: 20251020
  Serious: Yes (Other)
  Sender: COOPERSURGICAL
  Company Number: US-COOPERSURGICAL, INC.-2025CPS005797

PATIENT
  Age: 39 Year
  Sex: Female

DRUGS (1)
  1. PARAGARD T 380A [Suspect]
     Active Substance: COPPER
     Route: 015
     Dates: start: 20131108

REACTIONS (25)
  - Ovarian cyst [Unknown]
  - Device breakage [Not Recovered/Not Resolved]
  - Foreign body in reproductive tract [Not Recovered/Not Resolved]
  - Complication of device removal [Not Recovered/Not Resolved]
  - Abdominal distension [Unknown]
  - Flatulence [Unknown]
  - Cervix inflammation [Unknown]
  - Feeling abnormal [Unknown]
  - Hypomenorrhoea [Unknown]
  - Oligomenorrhoea [Unknown]
  - Libido decreased [Unknown]
  - Menopause [Unknown]
  - Complication associated with device [Unknown]
  - Procedural pain [Recovered/Resolved]
  - Procedural haemorrhage [Recovered/Resolved]
  - Uterine scar [Not Recovered/Not Resolved]
  - Emotional distress [Not Recovered/Not Resolved]
  - Vaginal infection [Unknown]
  - Vulvovaginitis [Unknown]
  - Discomfort [Unknown]
  - Menstruation irregular [Unknown]
  - Dyspareunia [Recovered/Resolved]
  - Amenorrhoea [Unknown]
  - Intentional device use issue [Unknown]
  - Off label use [Unknown]

NARRATIVE: CASE EVENT DATE: 20131101
